FAERS Safety Report 12998969 (Version 1)
Quarter: 2016Q4

REPORT INFORMATION
  Report Type: Spontaneous
  Country: NZ (occurrence: NZ)
  Receive Date: 20161205
  Receipt Date: 20161205
  Transmission Date: 20170207
  Serious: Yes (Hospitalization)
  Sender: FDA-Public Use
  Company Number: NZ-KADMON PHARMACEUTICALS, LLC-KAD201609-003505

PATIENT
  Sex: Female

DRUGS (2)
  1. RIBAVIRIN. [Suspect]
     Active Substance: RIBAVIRIN
     Indication: HEPATITIS C
     Dosage: TABLET
     Route: 048
     Dates: start: 20160815, end: 20160904
  2. VIEKIRA PAK [Suspect]
     Active Substance: DASABUVIR\OMBITASVIR\PARITAPREVIR\RITONAVIR
     Indication: HEPATITIS C
     Dosage: 12.5/75/50 MG 2 TABS IN THE MORNING AND 250 MG AT BED TIME
     Route: 048
     Dates: start: 20160815, end: 20160904

REACTIONS (6)
  - Malaise [Unknown]
  - Fatigue [Unknown]
  - Nervousness [Unknown]
  - Rash [Unknown]
  - Anxiety [Unknown]
  - Confusional state [Unknown]
